FAERS Safety Report 21189160 (Version 1)
Quarter: 2022Q3

REPORT INFORMATION
  Report Type: Report from Study
  Country: US (occurrence: US)
  Receive Date: 20220809
  Receipt Date: 20220809
  Transmission Date: 20221026
  Serious: No
  Sender: FDA-Public Use
  Company Number: US-NOVARTISTESTPH-NVSC2022US178924

PATIENT
  Sex: Female

DRUGS (3)
  1. GLEEVEC [Interacting]
     Active Substance: IMATINIB MESYLATE
     Indication: Product used for unknown indication
     Dosage: UNK
     Route: 065
  2. GLEEVEC [Interacting]
     Active Substance: IMATINIB MESYLATE
     Dosage: 200 MG
     Route: 065
  3. GLEEVEC [Interacting]
     Active Substance: IMATINIB MESYLATE
     Dosage: 300 MG (DOSE INCREASED)
     Route: 065

REACTIONS (2)
  - Fall [Unknown]
  - Drug interaction [Unknown]
